FAERS Safety Report 21909021 (Version 1)
Quarter: 2023Q1

REPORT INFORMATION
  Report Type: Spontaneous
  Country: US (occurrence: None)
  Receive Date: 20230124
  Receipt Date: 20230124
  Transmission Date: 20230418
  Serious: Yes (Disabling)
  Sender: FDA-Public Use
  Company Number: None

PATIENT
  Age: 39 Year
  Sex: Male
  Weight: 69.75 kg

DRUGS (2)
  1. ANCEF [Suspect]
     Active Substance: CEFAZOLIN SODIUM
     Indication: Antibiotic prophylaxis
     Dates: start: 20211117, end: 20211117
  2. VITAMIN B12 [Concomitant]
     Active Substance: CYANOCOBALAMIN

REACTIONS (16)
  - Nausea [None]
  - Dizziness [None]
  - Headache [None]
  - Fatigue [None]
  - Somnolence [None]
  - Immediate post-injection reaction [None]
  - Hypersensitivity [None]
  - Renal failure [None]
  - Anion gap [None]
  - Lipase increased [None]
  - Vomiting [None]
  - Acute kidney injury [None]
  - Drug-induced liver injury [None]
  - Food intolerance [None]
  - Illness [None]
  - Alcohol intolerance [None]

NARRATIVE: CASE EVENT DATE: 20211117
